FAERS Safety Report 8417972-0 (Version None)
Quarter: 2012Q2

REPORT INFORMATION
  Report Type: 
  Country: None (occurrence: None)
  Receive Date: 20120531
  Receipt Date: 20120531
  Transmission Date: 20120825
  Serious: No
  Sender: FDA-Public Use
  Company Number: None

PATIENT
  Age: 38 Year
  Sex: Female
  Weight: 63.5036 kg

DRUGS (1)
  1. CHANTIX [Suspect]
     Indication: SMOKING CESSATION THERAPY
     Dosage: SEE IMAGE
     Dates: start: 20120421, end: 20120526

REACTIONS (14)
  - MIGRAINE [None]
  - DISTURBANCE IN ATTENTION [None]
  - INSOMNIA [None]
  - IRRITABILITY [None]
  - SELF-INJURIOUS IDEATION [None]
  - ANGER [None]
  - NEGATIVE THOUGHTS [None]
  - MUSCULOSKELETAL STIFFNESS [None]
  - FORMICATION [None]
  - PRURITUS [None]
  - SWELLING FACE [None]
  - HEADACHE [None]
  - CRYING [None]
  - SWELLING [None]
